FAERS Safety Report 7597598-1 (Version None)
Quarter: 2011Q3

REPORT INFORMATION
  Report Type: 
  Country: None (occurrence: None)
  Receive Date: 20110708
  Receipt Date: 20110623
  Transmission Date: 20111222
  Serious: Yes (Death)
  Sender: FDA-Public Use
  Company Number: US-ROCHE-786443

PATIENT
  Age: 22 Year
  Sex: Male

DRUGS (4)
  1. NORDIAZEPAM [Interacting]
     Route: 065
  2. VALIUM [Suspect]
     Route: 065
  3. OXYCODONE HCL [Interacting]
     Route: 065
  4. CITALOPRAM HYDROBROMIDE [Interacting]
     Route: 065

REACTIONS (2)
  - TOXICITY TO VARIOUS AGENTS [None]
  - DRUG INTERACTION [None]
